FAERS Safety Report 12740075 (Version 2)
Quarter: 2016Q4

REPORT INFORMATION
  Report Type: Report from Study
  Country: AU (occurrence: AU)
  Receive Date: 20160913
  Receipt Date: 20161004
  Transmission Date: 20170207
  Serious: Yes (Other)
  Sender: FDA-Public Use
  Company Number: AU-UCBSA-2016034350

PATIENT
  Age: 42 Year
  Sex: Male
  Weight: 93 kg

DRUGS (3)
  1. NAPROXEN. [Concomitant]
     Active Substance: NAPROXEN
     Indication: AXIAL SPONDYLOARTHRITIS
     Dosage: 1 G, ONCE DAILY (QD)
     Route: 048
     Dates: start: 201512
  2. CURCUMIN [Concomitant]
     Active Substance: CURCUMIN
     Indication: AXIAL SPONDYLOARTHRITIS
     Dosage: 1 DF, 2X/DAY (BID)
     Route: 048
     Dates: start: 201501
  3. PLACEBO [Suspect]
     Active Substance: UNSPECIFIED INGREDIENT
     Indication: AXIAL SPONDYLOARTHRITIS
     Dosage: 200 MG, UNK
     Route: 058
     Dates: start: 20160513

REACTIONS (1)
  - Malignant melanoma [Recovered/Resolved]

NARRATIVE: CASE EVENT DATE: 20160805
